FAERS Safety Report 6800663-7 (Version None)
Quarter: 2010Q2

REPORT INFORMATION
  Report Type: 
  Country: None (occurrence: None)
  Receive Date: 20100629
  Receipt Date: 20100618
  Transmission Date: 20101027
  Serious: Yes (Other)
  Sender: FDA-Public Use
  Company Number: US-TYCO HEALTHCARE/MALLINCKRODT-T201001484

PATIENT
  Age: 75 Year
  Sex: Male

DRUGS (3)
  1. SODIUM IODIDE I 131 [Suspect]
     Indication: THYROID CANCER
     Dosage: 150 MCI, SINGLE
     Dates: start: 19970101, end: 19970101
  2. SODIUM IODIDE I 131 [Suspect]
     Dosage: 150 MCI, SINGLE
     Dates: start: 20060301, end: 20060301
  3. LEVOTHYROXINE SODIUM [Concomitant]
     Indication: HORMONE SUPPRESSION THERAPY
     Dosage: 0.15 MG, QD
     Dates: start: 19970101

REACTIONS (5)
  - METASTASES TO BONE [None]
  - METASTASES TO KIDNEY [None]
  - NEOPLASM RECURRENCE [None]
  - THYROID CANCER [None]
  - TREATMENT FAILURE [None]
